FAERS Safety Report 21584961 (Version 10)
Quarter: 2023Q2

REPORT INFORMATION
  Report Type: Report from Study
  Country: JP (occurrence: JP)
  Receive Date: 20221111
  Receipt Date: 20230512
  Transmission Date: 20230722
  Serious: Yes (Death)
  Sender: FDA-Public Use
  Company Number: JP-PFIZER INC-PV202200100447

PATIENT
  Age: 77 Year
  Sex: Male
  Weight: 49.3 kg

DRUGS (23)
  1. NIRMATRELVIR\RITONAVIR [Suspect]
     Active Substance: NIRMATRELVIR\RITONAVIR
     Indication: COVID-19 treatment
     Dosage: [PF-07321332 300 MG]/[RITONAVIR 100 MG]; 2X/DAY
     Route: 048
     Dates: start: 20220916, end: 20220917
  2. NIRMATRELVIR\RITONAVIR [Suspect]
     Active Substance: NIRMATRELVIR\RITONAVIR
     Dosage: [PF-07321332 300 MG]/[RITONAVIR 100 MG]; 1X/DAY
     Route: 048
     Dates: start: 20220918, end: 20220918
  3. VEKLURY [Concomitant]
     Active Substance: REMDESIVIR
     Indication: COVID-19
     Dosage: UNK
     Dates: start: 20220918, end: 20220922
  4. SODIUM CHLORIDE [Concomitant]
     Active Substance: SODIUM CHLORIDE
     Indication: COVID-19
     Dosage: UNK
     Dates: start: 20220918, end: 20220922
  5. WATER FOR INJECTION [Concomitant]
     Active Substance: WATER
     Indication: COVID-19
     Dosage: UNK
     Dates: start: 20220918, end: 20220922
  6. HEPARIN SODIUM [Concomitant]
     Active Substance: HEPARIN SODIUM
     Indication: COVID-19
     Dosage: UNK
     Dates: start: 20220923, end: 20220926
  7. HEPARIN CALCIUM [Concomitant]
     Active Substance: HEPARIN CALCIUM
     Indication: COVID-19
     Dosage: UNK
     Dates: start: 20220921, end: 20220922
  8. DORIPENEM MONOHYDRATE [Concomitant]
     Active Substance: DORIPENEM MONOHYDRATE
     Indication: Pneumonia
     Dosage: UNK
     Dates: start: 20220921, end: 20220926
  9. BIAPENEM [Concomitant]
     Active Substance: BIAPENEM
     Indication: Pneumonia
     Dosage: UNK
     Dates: start: 20220926, end: 20220926
  10. ELNEOPA NF NO.1 [Concomitant]
     Indication: COVID-19
     Dosage: UNK
     Dates: start: 20220922, end: 20220927
  11. RINDERON [BETAMETHASONE DIPROPIONATE] [Concomitant]
     Indication: Pneumonia
     Dosage: UNK
     Dates: start: 20220918, end: 20220920
  12. OMEPRAZOLE [Concomitant]
     Active Substance: OMEPRAZOLE
     Indication: Prophylaxis
     Dosage: UNK
     Dates: start: 20220918, end: 20220921
  13. PIPERACILLIN SODIUM\TAZOBACTAM SODIUM [Concomitant]
     Active Substance: PIPERACILLIN SODIUM\TAZOBACTAM SODIUM
     Indication: Pneumonia
     Dosage: UNK
     Dates: start: 20220918, end: 20220921
  14. ISOTONIC SODIUM CHLORIDE SOLUTION [Concomitant]
     Active Substance: SODIUM CHLORIDE
     Indication: Pneumonia
     Dosage: UNK
     Dates: start: 20220918, end: 20220926
  15. TERIPARATIDE ACETATE [Concomitant]
     Active Substance: TERIPARATIDE ACETATE
     Indication: Osteoporosis
     Dosage: UNK
     Dates: end: 20220923
  16. ISOTONIC SODIUM CHLORIDE SOLUTION [Concomitant]
     Active Substance: SODIUM CHLORIDE
     Indication: Hypophagia
     Dosage: UNK
     Dates: start: 20220918, end: 20220918
  17. TRIFLUID [CALCIUM CHLORIDE DIHYDRATE;FRUCTOSE;GLUCOSE;MAGNESIUM CHLORI [Concomitant]
     Indication: Hypophagia
     Dosage: UNK
     Dates: start: 20220919, end: 20220921
  18. AMINO ACIDS\DEXTROSE\ELECTROLYTES NOS\VITAMINS [Concomitant]
     Active Substance: AMINO ACIDS\DEXTROSE\ELECTROLYTES NOS\VITAMINS
     Indication: Hypophagia
     Dosage: UNK
     Dates: start: 20220919, end: 20220921
  19. AMINO ACIDS\DEXTROSE\ELECTROLYTES NOS\SOYBEAN OIL\VITAMINS [Concomitant]
     Active Substance: AMINO ACIDS\DEXTROSE\ELECTROLYTES NOS\SOYBEAN OIL\VITAMINS
     Indication: Hypophagia
     Dosage: UNK
     Route: 048
     Dates: end: 20220918
  20. ROZEREM [Concomitant]
     Active Substance: RAMELTEON
     Indication: Insomnia
     Dosage: UNK
     Route: 048
     Dates: end: 20220917
  21. SODIUM CHLORIDE [Concomitant]
     Active Substance: SODIUM CHLORIDE
     Indication: Hyponatraemia
     Dosage: UNK
     Route: 048
     Dates: end: 20220918
  22. MAGNESIUM OXIDE [Concomitant]
     Active Substance: MAGNESIUM OXIDE
     Indication: Constipation
     Dosage: UNK
     Route: 048
     Dates: end: 20220918
  23. GUAIAZULENE [Concomitant]
     Active Substance: GUAIAZULENE
     Indication: Anal eczema
     Dosage: UNK
     Dates: start: 20210901, end: 20220918

REACTIONS (1)
  - Pneumonia [Fatal]

NARRATIVE: CASE EVENT DATE: 20220918
